FAERS Safety Report 7355512-8 (Version None)
Quarter: 2011Q1

REPORT INFORMATION
  Report Type: 
  Country: None (occurrence: None)
  Receive Date: 20110316
  Receipt Date: 20110310
  Transmission Date: 20110831
  Serious: Yes (Other)
  Sender: FDA-Public Use
  Company Number: A0917563A

PATIENT
  Sex: Female

DRUGS (7)
  1. SINGULAIR [Concomitant]
  2. ZOCOR [Concomitant]
  3. ZYRTEC [Concomitant]
  4. PROAIR HFA [Concomitant]
  5. FLOVENT [Suspect]
     Indication: ASTHMA
     Dosage: 2PUFF TWICE PER DAY
     Route: 055
     Dates: start: 20070201
  6. LEVOXYL [Concomitant]
  7. NIFEDIPINE [Concomitant]

REACTIONS (4)
  - PULMONARY CONGESTION [None]
  - PRODUCT QUALITY ISSUE [None]
  - COUGH [None]
  - ASTHMA [None]
